APPROVED DRUG PRODUCT: MEMANTINE HYDROCHLORIDE
Active Ingredient: MEMANTINE HYDROCHLORIDE
Strength: 5MG
Dosage Form/Route: TABLET;ORAL
Application: A090244 | Product #001
Applicant: CHARTWELL LIFE MOLECULES LLC
Approved: Jul 11, 2018 | RLD: No | RS: No | Type: DISCN